FAERS Safety Report 8897133 (Version 2)
Quarter: 2012Q4

REPORT INFORMATION
  Report Type: 
  Country: CH (occurrence: CH)
  Receive Date: 20121108
  Receipt Date: 20121114
  Transmission Date: 20130627
  Serious: Yes (Other)
  Sender: FDA-Public Use
  Company Number: CH-GILEAD-2012-0064254

PATIENT
  Age: 48 Year
  Sex: Female

DRUGS (5)
  1. TRUVADA [Suspect]
     Indication: HIV INFECTION
     Dosage: UNK
     Dates: start: 201006
  2. DARUNAVIR [Concomitant]
     Indication: HIV INFECTION
     Dosage: UNK
     Dates: start: 201006
  3. UTROGESTAN [Concomitant]
  4. PROGYNOVA                          /00045401/ [Concomitant]
  5. RITONAVIR [Concomitant]

REACTIONS (1)
  - Osteoporosis [Unknown]
